FAERS Safety Report 9469611 (Version 1)
Quarter: 2013Q3

REPORT INFORMATION
  Report Type: Spontaneous
  Country: CA (occurrence: CA)
  Receive Date: 20130822
  Receipt Date: 20130822
  Transmission Date: 20140515
  Serious: Yes (Hospitalization)
  Sender: FDA-Public Use
  Company Number: CA-BRISTOL-MYERS SQUIBB COMPANY-19186816

PATIENT
  Age: 77 Year
  Sex: Male

DRUGS (12)
  1. SUSTIVA TABS 600 MG [Suspect]
  2. TRUVADA [Concomitant]
  3. XARELTO [Concomitant]
  4. LASIX [Concomitant]
  5. ATIVAN [Concomitant]
  6. SEROQUEL [Concomitant]
  7. CELEXA [Concomitant]
  8. LYRICA [Concomitant]
  9. FLAGYL [Concomitant]
  10. VANCOMYCIN [Concomitant]
  11. TYLENOL [Concomitant]
  12. MORPHINE [Concomitant]

REACTIONS (2)
  - Chronic obstructive pulmonary disease [Not Recovered/Not Resolved]
  - Circumstance or information capable of leading to medication error [Unknown]
